FAERS Safety Report 9332817 (Version 2)
Quarter: 2013Q3

REPORT INFORMATION
  Report Type: Spontaneous
  Country: US (occurrence: US)
  Receive Date: 20130606
  Receipt Date: 20130830
  Transmission Date: 20140515
  Serious: Yes (Congenital Anomaly, Other)
  Sender: FDA-Public Use
  Company Number: US-PFIZER INC-2013169707

PATIENT
  Sex: Female

DRUGS (13)
  1. ZOLOFT [Suspect]
     Dosage: UNK
     Route: 064
     Dates: start: 200910, end: 201007
  2. ZOLOFT [Suspect]
     Dosage: UNK
     Route: 064
     Dates: start: 201011, end: 2011
  3. SERTRALINE HCL [Suspect]
     Dosage: UNK
     Route: 064
     Dates: start: 200910, end: 201007
  4. SERTRALINE HCL [Suspect]
     Dosage: UNK
     Route: 064
     Dates: start: 201011, end: 2011
  5. PRENATAL VITAMINS [Concomitant]
     Dosage: UNK
     Route: 064
  6. VITAMIN B6 [Concomitant]
     Dosage: UNK
     Route: 064
  7. VITAMIN B12 [Concomitant]
     Dosage: UNK
     Route: 064
  8. FISH OIL [Concomitant]
     Dosage: UNK
     Route: 064
  9. TYLENOL COLD [Concomitant]
     Dosage: UNK
     Route: 064
  10. BENADRYL [Concomitant]
     Dosage: UNK
     Route: 064
  11. CHANTIX [Concomitant]
     Dosage: UNK
     Route: 064
  12. MIRENA [Concomitant]
     Dosage: UNK
     Route: 064
  13. CELEXA [Concomitant]
     Dosage: UNK
     Route: 064

REACTIONS (4)
  - Maternal exposure during pregnancy [Unknown]
  - Talipes [Unknown]
  - Foetal growth restriction [Unknown]
  - Congenital anomaly [Unknown]
